FAERS Safety Report 8277338-3 (Version None)
Quarter: 2012Q2

REPORT INFORMATION
  Report Type: 
  Country: None (occurrence: None)
  Receive Date: 20120412
  Receipt Date: 20120410
  Transmission Date: 20120825
  Serious: Yes (Other)
  Sender: FDA-Public Use
  Company Number: US-PFIZER INC-2012074877

PATIENT

DRUGS (1)
  1. CADUET [Suspect]
     Dosage: UNK

REACTIONS (2)
  - NASOPHARYNGITIS [None]
  - SINUSITIS [None]
